FAERS Safety Report 6240204-9 (Version None)
Quarter: 2009Q2

REPORT INFORMATION
  Report Type: 
  Country: None (occurrence: None)
  Receive Date: 20090623
  Receipt Date: 20090313
  Transmission Date: 20091009
  Serious: No
  Sender: FDA-Public Use
  Company Number: US-ASTRAZENECA-2008UW02153

PATIENT
  Age: 67 Year
  Sex: Male
  Weight: 77.1 kg

DRUGS (14)
  1. PULMICORT [Suspect]
     Indication: ASTHMA
     Route: 055
  2. AUGMENTIN (GENERIC) [Concomitant]
  3. ZETIA [Concomitant]
  4. FLOMAX [Concomitant]
  5. ALBUTEROL [Concomitant]
     Route: 055
  6. ACCOLATE [Concomitant]
  7. VITAMIN B COMPLEX CAP [Concomitant]
  8. LUTEIN [Concomitant]
  9. LYCOPENE [Concomitant]
  10. ESTER C [Concomitant]
  11. LUBRIFLEX [Concomitant]
  12. RED YEAST [Concomitant]
  13. RICE [Concomitant]
  14. ASPIRIN [Concomitant]

REACTIONS (2)
  - NASAL CONGESTION [None]
  - PRODUCT QUALITY ISSUE [None]
